FAERS Safety Report 4796257-8 (Version None)
Quarter: 2005Q4

REPORT INFORMATION
  Report Type: 
  Country: None (occurrence: None)
  Receive Date: 20051005
  Receipt Date: 20051005
  Transmission Date: 20060501
  Serious: Yes (Hospitalization)
  Sender: FDA-Public Use
  Company Number: None

PATIENT
  Age: 44 Year
  Sex: Female
  Weight: 54 kg

DRUGS (2)
  1. BEXXAR [Suspect]
     Indication: NON-HODGKIN'S LYMPHOMA
     Dosage: 450 MG IV  X 1 DOSE;  73.8 MCI   I131 IV X 1 DOSE
     Route: 042
     Dates: start: 20050915
  2. SSKI [Concomitant]

REACTIONS (9)
  - HYPOTENSION [None]
  - INFUSION RELATED REACTION [None]
  - MYALGIA [None]
  - NAUSEA [None]
  - PHARYNGOLARYNGEAL PAIN [None]
  - PYREXIA [None]
  - RASH ERYTHEMATOUS [None]
  - RASH GENERALISED [None]
  - VOMITING [None]
